FAERS Safety Report 24290770 (Version 2)
Quarter: 2024Q3

REPORT INFORMATION
  Report Type: Report from Study
  Country: JP (occurrence: JP)
  Receive Date: 20240906
  Receipt Date: 20240913
  Transmission Date: 20241017
  Serious: Yes (Hospitalization, Other)
  Sender: NOVARTIS
  Company Number: JP-002147023-NVSC2022JP304841

PATIENT
  Age: 23 Month
  Sex: Male

DRUGS (7)
  1. ZOLGENSMA [Suspect]
     Active Substance: ONASEMNOGENE ABEPARVOVEC-XIOI
     Indication: Spinal muscular atrophy
     Route: 065
  2. NITROPRUSSIDE [Suspect]
     Active Substance: NITROPRUSSIDE
     Indication: Blood pressure management
     Route: 065
  3. NITROPRUSSIDE [Suspect]
     Active Substance: NITROPRUSSIDE
     Indication: Thrombotic microangiopathy
  4. METHYLDOPA [Suspect]
     Active Substance: METHYLDOPA
     Indication: Blood pressure management
     Route: 065
  5. METHYLDOPA [Suspect]
     Active Substance: METHYLDOPA
     Indication: Thrombotic microangiopathy
  6. PREDNISOLONE [Concomitant]
     Active Substance: PREDNISOLONE
     Indication: Product used for unknown indication
     Route: 065
  7. FAMOTIDINE [Concomitant]
     Active Substance: FAMOTIDINE
     Indication: Product used for unknown indication
     Route: 065

REACTIONS (30)
  - Thrombotic microangiopathy [Recovering/Resolving]
  - Platelet count decreased [Recovered/Resolved]
  - Oliguria [Unknown]
  - Haemolysis [Unknown]
  - Haemoglobinuria [Unknown]
  - Myoglobinuria [Unknown]
  - Haematuria [Recovering/Resolving]
  - Pyrexia [Recovered/Resolved]
  - Vomiting [Recovered/Resolved]
  - Acute kidney injury [Recovering/Resolving]
  - Fluid retention [Unknown]
  - Hypertension [Unknown]
  - Oedema peripheral [Unknown]
  - Pleural effusion [Recovering/Resolving]
  - Anaemia [Recovered/Resolved]
  - Chronic kidney disease [Recovered/Resolved with Sequelae]
  - Hepatic function abnormal [Recovering/Resolving]
  - Aspartate aminotransferase increased [Recovered/Resolved]
  - Alanine aminotransferase increased [Recovered/Resolved]
  - Bradycardia [Unknown]
  - Syncope [Recovered/Resolved]
  - Presyncope [Unknown]
  - Arrhythmia [Recovered/Resolved]
  - Hepatic enzyme increased [Recovered/Resolved]
  - Mood altered [Recovering/Resolving]
  - Decreased appetite [Recovering/Resolving]
  - Faeces soft [Unknown]
  - Toxicity to various agents [Unknown]
  - Acidosis [Unknown]
  - Blood lactate dehydrogenase increased [Recovered/Resolved]

NARRATIVE: CASE EVENT DATE: 20220526
